FAERS Safety Report 5242472-9 (Version None)
Quarter: 2007Q1

REPORT INFORMATION
  Report Type: 
  Country: None (occurrence: None)
  Receive Date: 20070214
  Receipt Date: 20070126
  Transmission Date: 20070707
  Serious: Yes (Life-Threatening, Hospitalization, Other)
  Sender: FDA-Public Use
  Company Number: DSA_29297_2007

PATIENT
  Age: 61 Year
  Sex: Male

DRUGS (5)
  1. DILTIAZEM HCL [Suspect]
     Indication: HYPERTENSION
     Dosage: 300 MG Q DAY
  2. NADOLOL [Suspect]
     Indication: HYPERTENSION
     Dosage: 40 MG Q DAY
  3. IRBESARTAN [Concomitant]
  4. HYDROCHLOROTHIAZIDE [Concomitant]
  5. OTHER UNSPECIFIED MEDICATIONS (FOUR) [Concomitant]

REACTIONS (11)
  - BLOOD CREATININE INCREASED [None]
  - BLOOD UREA INCREASED [None]
  - BRADYCARDIA [None]
  - DISORIENTATION [None]
  - HAEMATOCRIT DECREASED [None]
  - HAEMOGLOBIN DECREASED [None]
  - HYPOTENSION [None]
  - LETHARGY [None]
  - NODAL RHYTHM [None]
  - RENAL FAILURE CHRONIC [None]
  - SINUS ARREST [None]
